FAERS Safety Report 22336605 (Version 1)
Quarter: 2023Q2

REPORT INFORMATION
  Report Type: Spontaneous
  Country: US (occurrence: None)
  Receive Date: 20230518
  Receipt Date: 20230518
  Transmission Date: 20230721
  Serious: No
  Sender: FDA-Public Use
  Company Number: US-ROCHE-3176355

PATIENT
  Sex: Female

DRUGS (10)
  1. ACTEMRA [Suspect]
     Active Substance: TOCILIZUMAB
     Indication: Rheumatoid arthritis
     Route: 058
  2. ACTEMRA [Suspect]
     Active Substance: TOCILIZUMAB
  3. CLONAZEPAM [Concomitant]
     Active Substance: CLONAZEPAM
  4. CYCLOBENZAPRINE [Concomitant]
     Active Substance: CYCLOBENZAPRINE
  5. DULOXETINE HYDROCHLORIDE [Concomitant]
     Active Substance: DULOXETINE HYDROCHLORIDE
  6. METHOTREXATE [Concomitant]
     Active Substance: METHOTREXATE
     Dosage: 50 MG/2ML
  7. ONDANSETRON [Concomitant]
     Active Substance: ONDANSETRON
  8. ZOLPIDEM TARTRATE [Concomitant]
     Active Substance: ZOLPIDEM TARTRATE
  9. HUMIRA [Concomitant]
     Active Substance: ADALIMUMAB
     Dosage: 40 MG/0.4 ML
  10. BUPROPION [Concomitant]
     Active Substance: BUPROPION

REACTIONS (1)
  - Infection [Unknown]
